FAERS Safety Report 5036609-4 (Version None)
Quarter: 2006Q2

REPORT INFORMATION
  Report Type: 
  Country: None (occurrence: None)
  Receive Date: 20060531
  Receipt Date: 20060425
  Transmission Date: 20061013
  Serious: No
  Sender: FDA-Public Use
  Company Number: PHEH2006US04527

PATIENT
  Age: 72 Year
  Sex: Female
  Weight: 65.3 kg

DRUGS (9)
  1. EXJADE [Suspect]
     Indication: BLOOD IRON INCREASED
     Dosage: 1250 MG, QD
     Dates: start: 20051228, end: 20060322
  2. LEVOXYL [Concomitant]
  3. ALTACE [Concomitant]
  4. ACTONEL [Concomitant]
  5. ZYRTEC [Concomitant]
  6. PROCRIT [Concomitant]
  7. RESTASIS (CICLOSPORIN) [Concomitant]
  8. AMOXICILLIN [Concomitant]
  9. TOPROL-XL [Concomitant]

REACTIONS (4)
  - HAEMOGLOBIN DECREASED [None]
  - INFLUENZA LIKE ILLNESS [None]
  - PLATELET COUNT DECREASED [None]
  - WHITE BLOOD CELL COUNT DECREASED [None]
